FAERS Safety Report 4637311-0 (Version None)
Quarter: 2005Q2

REPORT INFORMATION
  Report Type: 
  Country: None (occurrence: None)
  Receive Date: 20050328
  Receipt Date: 20041124
  Transmission Date: 20051028
  Serious: No
  Sender: FDA-Public Use
  Company Number: USA041184606

PATIENT
  Age: 57 Year
  Sex: Male

DRUGS (7)
  1. STRATTERA [Suspect]
     Indication: ATTENTION DEFICIT/HYPERACTIVITY DISORDER
     Dosage: 40 MG DAY
     Dates: start: 20041123
  2. PROVIGIL [Concomitant]
  3. CORTISONE [Concomitant]
  4. ALTACE [Concomitant]
  5. LIPITOR [Concomitant]
  6. BEXTRA [Concomitant]
  7. GLUCOSAMINE [Concomitant]

REACTIONS (3)
  - FEELING HOT [None]
  - FLUSHING [None]
  - HYPERHIDROSIS [None]
